FAERS Safety Report 6390171-2 (Version None)
Quarter: 2009Q4

REPORT INFORMATION
  Report Type: 
  Country: None (occurrence: None)
  Receive Date: 20091005
  Receipt Date: 20091005
  Transmission Date: 20100525
  Serious: Yes (Hospitalization)
  Sender: FDA-Public Use
  Company Number: None

PATIENT
  Age: 77 Year
  Sex: Male

DRUGS (1)
  1. FLOMAX [Suspect]
     Indication: BENIGN PROSTATIC HYPERPLASIA
     Dosage: 1 EVERY DAY PO
     Route: 048
     Dates: start: 20071029, end: 20090710

REACTIONS (3)
  - DECREASED APPETITE [None]
  - FATIGUE [None]
  - HYPOTENSION [None]
